FAERS Safety Report 9803401 (Version 1)
Quarter: 2014Q1

REPORT INFORMATION
  Report Type: Spontaneous
  Country: FR (occurrence: FR)
  Receive Date: 20140108
  Receipt Date: 20140108
  Transmission Date: 20141002
  Serious: Yes (Hospitalization)
  Sender: FDA-Public Use
  Company Number: FR-SA-2014SA000843

PATIENT
  Age: 69 Year
  Sex: Male

DRUGS (7)
  1. OFLOCET [Suspect]
     Indication: PRODUCT USED FOR UNKNOWN INDICATION
     Dosage: 200 MG, 2 DAY
     Route: 048
     Dates: start: 20131125, end: 20131128
  2. RIFADINE [Suspect]
     Indication: PRODUCT USED FOR UNKNOWN INDICATION
     Dosage: 800MG, 2 DAY
     Route: 042
     Dates: start: 20131125, end: 20131127
  3. VANCOMYCIN [Suspect]
     Indication: PRODUCT USED FOR UNKNOWN INDICATION
     Route: 065
     Dates: start: 20131124, end: 20131128
  4. ZOLPIDEM [Concomitant]
  5. SPIRONOLACTONE [Concomitant]
  6. INEXIUM [Concomitant]
  7. FENOFIBRATE [Concomitant]

REACTIONS (4)
  - Hypersensitivity [Recovered/Resolved]
  - Rash [Recovered/Resolved]
  - Pruritus [Recovered/Resolved]
  - Skin exfoliation [Recovered/Resolved]
